FAERS Safety Report 7523720-9 (Version None)
Quarter: 2011Q2

REPORT INFORMATION
  Report Type: 
  Country: None (occurrence: None)
  Receive Date: 20110603
  Receipt Date: 20110601
  Transmission Date: 20111010
  Serious: Yes (Other)
  Sender: FDA-Public Use
  Company Number: US-AMGEN-USASP2011028532

PATIENT
  Age: 57 Year
  Sex: Female

DRUGS (5)
  1. HYDROCORTISONE [Concomitant]
  2. PERIDEX                            /00016001/ [Concomitant]
  3. LYRICA [Concomitant]
  4. ALPHA LIPOIC ACID [Concomitant]
  5. NPLATE [Suspect]
     Indication: THROMBOCYTOPENIA
     Dates: start: 20101103, end: 20110309

REACTIONS (4)
  - THROMBOCYTOPENIA [None]
  - BACTERAEMIA [None]
  - IRON OVERLOAD [None]
  - REFRACTORINESS TO PLATELET TRANSFUSION [None]
